FAERS Safety Report 13666295 (Version 1)
Quarter: 2017Q2

REPORT INFORMATION
  Report Type: Spontaneous
  Country: US (occurrence: US)
  Receive Date: 20170619
  Receipt Date: 20170619
  Transmission Date: 20170830
  Serious: No
  Sender: FDA-Public Use
  Company Number: US-ROCHE-1295876

PATIENT
  Sex: Female

DRUGS (17)
  1. TEMOZOLOMIDE. [Concomitant]
     Active Substance: TEMOZOLOMIDE
  2. ZOLPIDEM [Concomitant]
     Active Substance: ZOLPIDEM\ZOLPIDEM TARTRATE
  3. DILTIAZEM. [Concomitant]
     Active Substance: DILTIAZEM
  4. HYDROCHLOROTHIAZIDE. [Concomitant]
     Active Substance: HYDROCHLOROTHIAZIDE
  5. XELODA [Suspect]
     Active Substance: CAPECITABINE
     Indication: BREAST CANCER
     Dosage: 14 DAYS ON AND 7 DAYS OFF: 3 IN MORNING AND 2 IN EVENING
     Route: 048
     Dates: start: 20130606
  6. LANTUS [Concomitant]
     Active Substance: INSULIN GLARGINE
  7. VITAMIN D3 [Concomitant]
     Active Substance: CHOLECALCIFEROL
  8. LORAZEPAM. [Concomitant]
     Active Substance: LORAZEPAM
  9. LIPITOR [Concomitant]
     Active Substance: ATORVASTATIN CALCIUM
  10. ASPIRIN. [Concomitant]
     Active Substance: ASPIRIN
  11. AMBIEN [Concomitant]
     Active Substance: ZOLPIDEM TARTRATE
  12. LOSARTAN. [Concomitant]
     Active Substance: LOSARTAN
  13. HUMALOG [Concomitant]
     Active Substance: INSULIN LISPRO
  14. ALENDRONATE [Concomitant]
     Active Substance: ALENDRONATE SODIUM
  15. LATISSE [Concomitant]
     Active Substance: BIMATOPROST
  16. FOSAMAX [Concomitant]
     Active Substance: ALENDRONATE SODIUM
  17. LIPOFEN [Concomitant]
     Active Substance: FENOFIBRATE

REACTIONS (13)
  - Asthenia [Unknown]
  - Anosmia [Unknown]
  - Insomnia [Unknown]
  - Nausea [Unknown]
  - Influenza [Unknown]
  - Vomiting [Unknown]
  - Constipation [Unknown]
  - Pain in extremity [Unknown]
  - Eye pain [Unknown]
  - Abdominal pain upper [Unknown]
  - Decreased appetite [Unknown]
  - Abdominal discomfort [Unknown]
  - Headache [Unknown]
